FAERS Safety Report 4893948-5 (Version None)
Quarter: 2006Q1

REPORT INFORMATION
  Report Type: 
  Country: None (occurrence: None)
  Receive Date: 20060127
  Receipt Date: 20050309
  Transmission Date: 20060701
  Serious: Yes (Hospitalization)
  Sender: FDA-Public Use
  Company Number: US-GLAXOSMITHKLINE-A0549048A

PATIENT
  Age: 84 Year
  Sex: Male

DRUGS (5)
  1. WELLBUTRIN [Suspect]
     Indication: DEPRESSION
     Route: 048
  2. FLEXERIL [Concomitant]
  3. MAXZIDE [Concomitant]
  4. PEPCID [Concomitant]
  5. TOPROL [Concomitant]

REACTIONS (1)
  - WEIGHT DECREASED [None]
